FAERS Safety Report 7008581-9 (Version None)
Quarter: 2010Q3

REPORT INFORMATION
  Report Type: 
  Country: None (occurrence: None)
  Receive Date: 20100922
  Receipt Date: 20100908
  Transmission Date: 20110219
  Serious: Yes (Other)
  Sender: FDA-Public Use
  Company Number: BE-WATSON-2010-12540

PATIENT
  Age: 27 Year
  Sex: Male

DRUGS (3)
  1. ATENOLOL [Suspect]
     Indication: HYPERTENSION
     Dosage: UNK
  2. GADOLINIUM [Suspect]
     Indication: PRODUCT USED FOR UNKNOWN INDICATION
     Dosage: 0.2 MMOL/KG
  3. EPOETIN BETA [Suspect]
     Indication: ANAEMIA
     Dosage: 200 IU/BW/WK

REACTIONS (1)
  - NEPHROGENIC SYSTEMIC FIBROSIS [None]
